FAERS Safety Report 20902815 (Version 2)
Quarter: 2022Q2

REPORT INFORMATION
  Report Type: Other
  Country: US (occurrence: None)
  Receive Date: 20220601
  Receipt Date: 20220603
  Transmission Date: 20220721
  Serious: No
  Sender: FDA-Public Use
  Company Number: US-ROCHE-3106589

PATIENT
  Sex: Male

DRUGS (1)
  1. OCREVUS [Suspect]
     Active Substance: OCRELIZUMAB
     Indication: Multiple sclerosis
     Dosage: 300 MG/10 ML
     Route: 065
     Dates: start: 201903

REACTIONS (5)
  - COVID-19 [Unknown]
  - Hypogammaglobulinaemia [Unknown]
  - Alanine aminotransferase increased [Unknown]
  - Infection [Unknown]
  - Therapeutic response shortened [Unknown]
